FAERS Safety Report 15299069 (Version 1)
Quarter: 2018Q3

REPORT INFORMATION
  Report Type: Spontaneous
  Country: US (occurrence: US)
  Receive Date: 20180808
  Receipt Date: 20180808
  Transmission Date: 20181010
  Serious: Yes (Disabling)
  Sender: FDA-Public Use
  Company Number: None

PATIENT
  Age: 52 Year
  Sex: Female
  Weight: 84.15 kg

DRUGS (5)
  1. VITAMIN D3 [Concomitant]
     Active Substance: CHOLECALCIFEROL
  2. BUPRENORP?NALOX [Concomitant]
  3. MELOXICAM. [Concomitant]
     Active Substance: MELOXICAM
  4. ATORVASTATIN CALCIUM. [Suspect]
     Active Substance: ATORVASTATIN CALCIUM
     Indication: BLOOD CHOLESTEROL INCREASED
     Dosage: ?          QUANTITY:30 TABLET(S);?
     Route: 048
     Dates: start: 20180524, end: 20180701
  5. GABAPENTIN. [Concomitant]
     Active Substance: GABAPENTIN

REACTIONS (6)
  - Musculoskeletal stiffness [None]
  - Peripheral swelling [None]
  - Arthralgia [None]
  - Mobility decreased [None]
  - Pain in extremity [None]
  - Arthritis [None]

NARRATIVE: CASE EVENT DATE: 20180701
